FAERS Safety Report 9838566 (Version 2)
Quarter: 2014Q1

REPORT INFORMATION
  Report Type: Spontaneous
  Country: JP (occurrence: JP)
  Receive Date: 20140123
  Receipt Date: 20140207
  Transmission Date: 20141002
  Serious: Yes (Other)
  Sender: FDA-Public Use
  Company Number: JP-PFIZER INC-2014020378

PATIENT
  Age: 78 Year
  Sex: Male
  Weight: 75 kg

DRUGS (3)
  1. CELECOX [Suspect]
     Indication: BACK PAIN
     Dosage: 100 MG, 2X/DAY (STRENGTH 100MG TABLET)
     Route: 048
     Dates: start: 20131209, end: 20131210
  2. REBAMIPIDE [Suspect]
     Dosage: 100 MG, 2X/DAY
     Route: 048
     Dates: start: 20131209
  3. LYRICA [Concomitant]
     Dosage: 75 MG, 1X/DAY
     Route: 048
     Dates: start: 20131209

REACTIONS (1)
  - Rash generalised [Recovered/Resolved]
